FAERS Safety Report 9768926 (Version 1)
Quarter: 2013Q4

REPORT INFORMATION
  Report Type: Spontaneous
  Country: US (occurrence: None)
  Receive Date: 20131217
  Receipt Date: 20131217
  Transmission Date: 20140711
  Serious: Yes (Other)
  Sender: FDA-Public Use
  Company Number: None

PATIENT
  Age: 29 Year
  Sex: Male
  Weight: 115.67 kg

DRUGS (1)
  1. HYDROCODONE/ACETOMINOPHEN [Suspect]
     Indication: PAIN
     Route: 048
     Dates: start: 20131213, end: 20131214

REACTIONS (1)
  - Local swelling [None]
